FAERS Safety Report 9189362 (Version 3)
Quarter: 2013Q2

REPORT INFORMATION
  Report Type: Spontaneous
  Country: BR (occurrence: BR)
  Receive Date: 20130326
  Receipt Date: 20130529
  Transmission Date: 20140414
  Serious: Yes (Life-Threatening, Hospitalization)
  Sender: FDA-Public Use
  Company Number: PHHY2013BR028391

PATIENT
  Age: 57 Year
  Sex: Female

DRUGS (4)
  1. FORASEQ [Suspect]
     Indication: ASTHMA
     Dosage: 4 DF, UNK
  2. FORASEQ [Suspect]
     Dosage: 2 DF, UNK
  3. FORASEQ [Suspect]
     Dosage: 1 DF, DAILY
  4. SINGULAIR [Suspect]
     Indication: ASTHMA
     Dosage: 1 DF, DAILY
     Route: 048

REACTIONS (5)
  - Cardio-respiratory arrest [Recovered/Resolved]
  - Apparent death [Unknown]
  - Pulmonary oedema [Recovered/Resolved]
  - Dyspnoea [Recovered/Resolved]
  - Drug prescribing error [Unknown]
